FAERS Safety Report 13707943 (Version 1)
Quarter: 2017Q2

REPORT INFORMATION
  Report Type: Spontaneous
  Country: RU (occurrence: RU)
  Receive Date: 20170630
  Receipt Date: 20170630
  Transmission Date: 20170830
  Serious: Yes (Hospitalization)
  Sender: FDA-Public Use
  Company Number: RU-ELI_LILLY_AND_COMPANY-RU201706012432

PATIENT
  Age: 32 Year
  Sex: Male

DRUGS (1)
  1. ERBITUX [Suspect]
     Active Substance: CETUXIMAB
     Indication: TONGUE CARCINOMA STAGE III
     Dosage: 400 MG/M2, UNKNOWN
     Dates: start: 201702, end: 201703

REACTIONS (2)
  - Malignant neoplasm progression [Unknown]
  - Alveolitis allergic [Unknown]

NARRATIVE: CASE EVENT DATE: 20170314
